FAERS Safety Report 23431637 (Version 1)
Quarter: 2024Q1

REPORT INFORMATION
  Report Type: Spontaneous
  Country: US (occurrence: US)
  Receive Date: 20240123
  Receipt Date: 20240123
  Transmission Date: 20240410
  Serious: Yes (Other)
  Sender: FDA-Public Use
  Company Number: US-AMGEN-USASP2024009260

PATIENT

DRUGS (6)
  1. PEGFILGRASTIM [Suspect]
     Active Substance: PEGFILGRASTIM
     Indication: Prophylaxis
     Dosage: 6 MILLIGRAM
     Route: 065
  2. EFBEMALENOGRASTIM ALFA [Suspect]
     Active Substance: EFBEMALENOGRASTIM ALFA
     Indication: Prophylaxis
     Dosage: 240 MICROGRAM/KILOGRAM
     Route: 065
  3. EFBEMALENOGRASTIM ALFA [Suspect]
     Active Substance: EFBEMALENOGRASTIM ALFA
     Dosage: 320 MICROGRAM/KILOGRAM
     Route: 065
  4. TAXOTERE [Concomitant]
     Active Substance: DOCETAXEL
     Indication: Invasive breast carcinoma
     Dosage: 75 MILLIGRAM/SQ. METER
  5. CYCLOPHOSPHAMIDE [Concomitant]
     Active Substance: CYCLOPHOSPHAMIDE
     Indication: Invasive breast carcinoma
     Dosage: 600 MILLIMOLE PER SQUARE METRE
  6. DOXORUBICIN [Concomitant]
     Active Substance: DOXORUBICIN
     Indication: Invasive breast carcinoma
     Dosage: 50 MILLIGRAM/SQ. METER

REACTIONS (11)
  - Febrile neutropenia [Unknown]
  - Neutropenia [Unknown]
  - Leukopenia [Unknown]
  - Adverse drug reaction [Unknown]
  - Alopecia [Unknown]
  - Asthenia [Unknown]
  - Nausea [Unknown]
  - Fatigue [Unknown]
  - Diarrhoea [Unknown]
  - Headache [Unknown]
  - Bone pain [Unknown]
